FAERS Safety Report 5311836-7 (Version None)
Quarter: 2007Q2

REPORT INFORMATION
  Report Type: 
  Country: None (occurrence: None)
  Receive Date: 20070427
  Receipt Date: 20070427
  Transmission Date: 20071010
  Serious: Yes (Disabling)
  Sender: FDA-Public Use
  Company Number: None

PATIENT
  Sex: Female
  Weight: 3.4 kg

DRUGS (1)
  1. HUMULIN R [Suspect]
     Indication: BLOOD GLUCOSE INCREASED
     Dosage: 10 UNITS  ONCE  IV
     Route: 042
     Dates: start: 20070323, end: 20070323

REACTIONS (1)
  - BLOOD GLUCOSE DECREASED [None]
